FAERS Safety Report 12471391 (Version 1)
Quarter: 2016Q2

REPORT INFORMATION
  Report Type: Report from Study
  Country: JP (occurrence: JP)
  Receive Date: 20160616
  Receipt Date: 20160616
  Transmission Date: 20160815
  Serious: Yes (Death)
  Sender: FDA-Public Use
  Company Number: JP-ROCHE-1774357

PATIENT

DRUGS (108)
  1. CLONAZEPAM. [Suspect]
     Active Substance: CLONAZEPAM
     Indication: PRODUCT USED FOR UNKNOWN INDICATION
     Route: 065
  2. VALPROATE [Interacting]
     Active Substance: VALPROIC ACID
     Indication: PRODUCT USED FOR UNKNOWN INDICATION
     Route: 065
  3. LORAZEPAM. [Interacting]
     Active Substance: LORAZEPAM
     Indication: PRODUCT USED FOR UNKNOWN INDICATION
     Route: 065
  4. HALOPERIDOL. [Interacting]
     Active Substance: HALOPERIDOL
     Indication: PRODUCT USED FOR UNKNOWN INDICATION
     Route: 065
  5. AMOXAPINE. [Interacting]
     Active Substance: AMOXAPINE
     Indication: PRODUCT USED FOR UNKNOWN INDICATION
     Route: 065
  6. BLONANSERIN [Interacting]
     Active Substance: BLONANSERIN
     Indication: PRODUCT USED FOR UNKNOWN INDICATION
     Route: 065
  7. MOSAPRAMINE [Interacting]
     Active Substance: MOSAPRAMINE
     Indication: PRODUCT USED FOR UNKNOWN INDICATION
     Route: 065
  8. PIPAMPERONE [Interacting]
     Active Substance: PIPAMPERONE
     Indication: PRODUCT USED FOR UNKNOWN INDICATION
     Route: 065
  9. NORTRIPTYLINE [Interacting]
     Active Substance: NORTRIPTYLINE
     Indication: PRODUCT USED FOR UNKNOWN INDICATION
     Route: 065
  10. FLUTAZOLAM [Interacting]
     Active Substance: FLUTAZOLAM
     Indication: PRODUCT USED FOR UNKNOWN INDICATION
     Route: 065
  11. HYDROXYZINE [Interacting]
     Active Substance: HYDROXYZINE\HYDROXYZINE HYDROCHLORIDE
     Indication: PRODUCT USED FOR UNKNOWN INDICATION
     Route: 065
  12. LORMETAZEPAM [Interacting]
     Active Substance: LORMETAZEPAM
     Indication: PRODUCT USED FOR UNKNOWN INDICATION
     Route: 065
  13. PHENOBARBITAL SODIUM. [Interacting]
     Active Substance: PHENOBARBITAL SODIUM
     Indication: PRODUCT USED FOR UNKNOWN INDICATION
     Route: 065
  14. ACETAZOLAMIDE. [Interacting]
     Active Substance: ACETAZOLAMIDE
     Indication: PRODUCT USED FOR UNKNOWN INDICATION
     Route: 065
  15. LEVETIRACETAM. [Interacting]
     Active Substance: LEVETIRACETAM
     Indication: PRODUCT USED FOR UNKNOWN INDICATION
     Route: 065
  16. PHENYTOIN. [Interacting]
     Active Substance: PHENYTOIN
     Indication: PRODUCT USED FOR UNKNOWN INDICATION
     Route: 065
  17. SULTIAME [Interacting]
     Active Substance: SULTHIAME
     Indication: PRODUCT USED FOR UNKNOWN INDICATION
     Route: 065
  18. NITRAZEPAM [Interacting]
     Active Substance: NITRAZEPAM
     Indication: PRODUCT USED FOR UNKNOWN INDICATION
     Route: 065
  19. PENTOBARBITAL CALCIUM [Interacting]
     Active Substance: PENTOBARBITAL CALCIUM
     Indication: PRODUCT USED FOR UNKNOWN INDICATION
     Route: 065
  20. FLUVOXAMINE [Interacting]
     Active Substance: FLUVOXAMINE
     Indication: PRODUCT USED FOR UNKNOWN INDICATION
     Route: 065
  21. ESTAZOLAM. [Interacting]
     Active Substance: ESTAZOLAM
     Indication: PRODUCT USED FOR UNKNOWN INDICATION
     Route: 065
  22. ARIPIPRAZOLE. [Interacting]
     Active Substance: ARIPIPRAZOLE
     Indication: PRODUCT USED FOR UNKNOWN INDICATION
     Route: 065
  23. TIMIPERONE [Interacting]
     Active Substance: TIMIPERONE
     Indication: PRODUCT USED FOR UNKNOWN INDICATION
     Route: 065
  24. MAPROTILINE [Interacting]
     Active Substance: MAPROTILINE
     Indication: PRODUCT USED FOR UNKNOWN INDICATION
     Route: 065
  25. MILNACIPRAN [Interacting]
     Active Substance: MILNACIPRAN
     Indication: PRODUCT USED FOR UNKNOWN INDICATION
     Route: 065
  26. MIRTAZAPINE. [Interacting]
     Active Substance: MIRTAZAPINE
     Indication: PRODUCT USED FOR UNKNOWN INDICATION
     Route: 065
  27. CARBAMAZEPINE. [Interacting]
     Active Substance: CARBAMAZEPINE
     Indication: PRODUCT USED FOR UNKNOWN INDICATION
     Route: 065
  28. CLORAZEPATE DIPOTASSIUM. [Interacting]
     Active Substance: CLORAZEPATE DIPOTASSIUM
     Indication: PRODUCT USED FOR UNKNOWN INDICATION
     Route: 065
  29. TANDOSPIRONE CITRATE [Interacting]
     Active Substance: TANDOSPIRONE CITRATE
     Indication: PRODUCT USED FOR UNKNOWN INDICATION
     Route: 065
  30. DIAZEPAM. [Interacting]
     Active Substance: DIAZEPAM
     Indication: PRODUCT USED FOR UNKNOWN INDICATION
     Route: 065
  31. ZOPICLONE [Interacting]
     Active Substance: ZOPICLONE
     Indication: PRODUCT USED FOR UNKNOWN INDICATION
     Route: 065
  32. PAROXETINE. [Interacting]
     Active Substance: PAROXETINE
     Indication: PRODUCT USED FOR UNKNOWN INDICATION
     Route: 065
  33. TRAZODONE [Interacting]
     Active Substance: TRAZODONE HYDROCHLORIDE
     Indication: PRODUCT USED FOR UNKNOWN INDICATION
     Route: 065
  34. NEMONAPRIDE [Interacting]
     Active Substance: NEMONAPRIDE
     Indication: PRODUCT USED FOR UNKNOWN INDICATION
     Route: 065
  35. TIAPRIDE [Interacting]
     Active Substance: TIAPRIDE
     Indication: PRODUCT USED FOR UNKNOWN INDICATION
     Route: 065
  36. AMITRIPTYLINE [Interacting]
     Active Substance: AMITRIPTYLINE
     Indication: PRODUCT USED FOR UNKNOWN INDICATION
     Route: 065
  37. CLOMIPRAMINE [Interacting]
     Active Substance: CLOMIPRAMINE
     Indication: PRODUCT USED FOR UNKNOWN INDICATION
     Route: 065
  38. IMIPRAMINE [Interacting]
     Active Substance: IMIPRAMINE
     Indication: PRODUCT USED FOR UNKNOWN INDICATION
     Route: 065
  39. CHLORAL [Interacting]
     Active Substance: CHLORAL
     Indication: PRODUCT USED FOR UNKNOWN INDICATION
     Route: 065
  40. FLURAZEPAM [Interacting]
     Active Substance: FLURAZEPAM\FLURAZEPAM HYDROCHLORIDE
     Indication: PRODUCT USED FOR UNKNOWN INDICATION
     Route: 065
  41. RAMELTEON [Interacting]
     Active Substance: RAMELTEON
     Indication: PRODUCT USED FOR UNKNOWN INDICATION
     Route: 065
  42. TRICLOFOS [Interacting]
     Active Substance: TRICLOFOS
     Indication: PRODUCT USED FOR UNKNOWN INDICATION
     Route: 065
  43. TRIMETHADIONE [Interacting]
     Active Substance: TRIMETHADIONE
     Indication: PRODUCT USED FOR UNKNOWN INDICATION
     Route: 065
  44. CHLORPROMAZINE/PHENOBARBITAL/PROMETHAZINE HYDROCHLORIDE [Interacting]
     Active Substance: CHLORPROMAZINE HYDROCHLORIDE\PHENOBARBITAL\PROMETHAZINE
     Indication: PRODUCT USED FOR UNKNOWN INDICATION
     Route: 065
  45. QUETIAPINE. [Interacting]
     Active Substance: QUETIAPINE
     Indication: PRODUCT USED FOR UNKNOWN INDICATION
     Route: 065
  46. ALPRAZOLAM. [Interacting]
     Active Substance: ALPRAZOLAM
     Indication: PRODUCT USED FOR UNKNOWN INDICATION
     Route: 065
  47. SULPIRIDE [Interacting]
     Active Substance: SULPIRIDE
     Indication: PRODUCT USED FOR UNKNOWN INDICATION
     Route: 065
  48. CLOZAPINE. [Interacting]
     Active Substance: CLOZAPINE
     Indication: PRODUCT USED FOR UNKNOWN INDICATION
     Route: 065
  49. FLUPHENAZINE [Interacting]
     Active Substance: FLUPHENAZINE
     Indication: PRODUCT USED FOR UNKNOWN INDICATION
     Route: 065
  50. PERPHENAZINE. [Interacting]
     Active Substance: PERPHENAZINE
     Indication: PRODUCT USED FOR UNKNOWN INDICATION
     Route: 065
  51. PIMOZIDE. [Interacting]
     Active Substance: PIMOZIDE
     Indication: PRODUCT USED FOR UNKNOWN INDICATION
     Route: 065
  52. SULTOPRIDE [Interacting]
     Active Substance: SULTOPRIDE
     Indication: PRODUCT USED FOR UNKNOWN INDICATION
     Route: 065
  53. SETIPTILINE [Interacting]
     Active Substance: SETIPTILINE
     Indication: PRODUCT USED FOR UNKNOWN INDICATION
     Route: 065
  54. LAMOTRIGINE. [Interacting]
     Active Substance: LAMOTRIGINE
     Indication: PRODUCT USED FOR UNKNOWN INDICATION
     Route: 065
  55. BARBITAL [Interacting]
     Active Substance: BARBITAL
     Indication: PRODUCT USED FOR UNKNOWN INDICATION
     Route: 065
  56. FLUTOPRAZEPAM [Interacting]
     Active Substance: FLUTOPRAZEPAM
     Indication: PRODUCT USED FOR UNKNOWN INDICATION
     Route: 065
  57. MEDAZEPAM [Interacting]
     Active Substance: MEDAZEPAM
     Indication: PRODUCT USED FOR UNKNOWN INDICATION
     Route: 065
  58. TOFISOPAM [Interacting]
     Active Substance: TOFISOPAM
     Indication: PRODUCT USED FOR UNKNOWN INDICATION
     Route: 065
  59. CLOBAZAM [Interacting]
     Active Substance: CLOBAZAM
     Indication: PRODUCT USED FOR UNKNOWN INDICATION
     Route: 065
  60. GABAPENTIN. [Interacting]
     Active Substance: GABAPENTIN
     Indication: PRODUCT USED FOR UNKNOWN INDICATION
     Route: 065
  61. FLUNITRAZEPAM [Interacting]
     Active Substance: FLUNITRAZEPAM
     Indication: PRODUCT USED FOR UNKNOWN INDICATION
     Route: 065
  62. RISPERIDONE. [Interacting]
     Active Substance: RISPERIDONE
     Indication: PRODUCT USED FOR UNKNOWN INDICATION
     Route: 065
  63. BROMPERIDOL [Interacting]
     Active Substance: BROMPERIDOL
     Indication: PRODUCT USED FOR UNKNOWN INDICATION
     Route: 065
  64. OXYPERTINE [Interacting]
     Active Substance: OXYPERTINE
     Indication: PRODUCT USED FOR UNKNOWN INDICATION
     Route: 065
  65. LOFEPRAMINE [Interacting]
     Active Substance: LOFEPRAMINE
     Indication: PRODUCT USED FOR UNKNOWN INDICATION
     Route: 065
  66. SERTRALINE [Interacting]
     Active Substance: SERTRALINE HYDROCHLORIDE
     Indication: PRODUCT USED FOR UNKNOWN INDICATION
     Route: 065
  67. BROMOVALERYLUREA [Interacting]
     Active Substance: BROMISOVAL
     Indication: PRODUCT USED FOR UNKNOWN INDICATION
     Route: 065
  68. CHLORDIAZEPOXIDE. [Interacting]
     Active Substance: CHLORDIAZEPOXIDE
     Indication: PRODUCT USED FOR UNKNOWN INDICATION
     Route: 065
  69. NIMETAZEPAM [Interacting]
     Active Substance: NIMETAZEPAM
     Indication: PRODUCT USED FOR UNKNOWN INDICATION
     Route: 065
  70. RILMAZAFONE [Interacting]
     Active Substance: RILMAZAFONE
     Indication: PRODUCT USED FOR UNKNOWN INDICATION
     Route: 065
  71. TOPIRAMATE. [Interacting]
     Active Substance: TOPIRAMATE
     Indication: PRODUCT USED FOR UNKNOWN INDICATION
     Route: 065
  72. ETIZOLAM [Interacting]
     Active Substance: ETIZOLAM
     Indication: PRODUCT USED FOR UNKNOWN INDICATION
     Route: 065
  73. BROTIZOLAM [Interacting]
     Active Substance: BROTIZOLAM
     Indication: PRODUCT USED FOR UNKNOWN INDICATION
     Route: 065
  74. CHLORPROMAZINE. [Interacting]
     Active Substance: CHLORPROMAZINE
     Indication: PRODUCT USED FOR UNKNOWN INDICATION
     Route: 065
  75. ETHYL LOFLAZEPATE [Interacting]
     Active Substance: ETHYL LOFLAZEPATE
     Indication: PRODUCT USED FOR UNKNOWN INDICATION
     Route: 065
  76. PEROSPIRONE [Interacting]
     Active Substance: PEROSPIRONE
     Indication: PRODUCT USED FOR UNKNOWN INDICATION
     Route: 065
  77. RESERPINE. [Interacting]
     Active Substance: RESERPINE
     Indication: PRODUCT USED FOR UNKNOWN INDICATION
     Route: 065
  78. ZOTEPINE [Interacting]
     Active Substance: ZOTEPINE
     Indication: PRODUCT USED FOR UNKNOWN INDICATION
     Route: 065
  79. DOSULEPIN HYDROCHLORIDE [Interacting]
     Active Substance: DOTHIEPIN HYDROCHLORIDE
     Indication: PRODUCT USED FOR UNKNOWN INDICATION
     Route: 065
  80. DULOXETINE. [Interacting]
     Active Substance: DULOXETINE
     Indication: PRODUCT USED FOR UNKNOWN INDICATION
     Route: 065
  81. HALOXAZOLAM [Interacting]
     Active Substance: HALOXAZOLAM
     Indication: PRODUCT USED FOR UNKNOWN INDICATION
     Route: 065
  82. MEXAZOLAM [Interacting]
     Active Substance: MEXAZOLAM
     Indication: PRODUCT USED FOR UNKNOWN INDICATION
     Route: 065
  83. OXAZOLAM [Interacting]
     Active Substance: OXAZOLAM
     Indication: PRODUCT USED FOR UNKNOWN INDICATION
     Route: 065
  84. PRAZEPAM [Interacting]
     Active Substance: PRAZEPAM
     Indication: PRODUCT USED FOR UNKNOWN INDICATION
     Route: 065
  85. ACETYLPHENETURIDE [Interacting]
     Active Substance: ACETYLPHENETURIDE
     Indication: PRODUCT USED FOR UNKNOWN INDICATION
     Route: 065
  86. PHENOBARBITAL/PHENYTOIN [Interacting]
     Active Substance: PHENOBARBITAL\PHENYTOIN
     Indication: PRODUCT USED FOR UNKNOWN INDICATION
     Route: 065
  87. PRIMIDONE. [Interacting]
     Active Substance: PRIMIDONE
     Indication: PRODUCT USED FOR UNKNOWN INDICATION
     Route: 065
  88. ZOLPIDEM [Interacting]
     Active Substance: ZOLPIDEM\ZOLPIDEM TARTRATE
     Indication: PRODUCT USED FOR UNKNOWN INDICATION
     Route: 065
  89. TRIAZOLAM. [Interacting]
     Active Substance: TRIAZOLAM
     Indication: PRODUCT USED FOR UNKNOWN INDICATION
     Route: 065
  90. QUAZEPAM. [Interacting]
     Active Substance: QUAZEPAM
     Indication: PRODUCT USED FOR UNKNOWN INDICATION
     Route: 065
  91. PROCHLORPERAZINE. [Interacting]
     Active Substance: PROCHLORPERAZINE
     Indication: PRODUCT USED FOR UNKNOWN INDICATION
     Route: 065
  92. PROPERICIAZINE [Interacting]
     Active Substance: PERICIAZINE
     Indication: PRODUCT USED FOR UNKNOWN INDICATION
     Route: 065
  93. TRIMIPRAMINE [Interacting]
     Active Substance: TRIMIPRAMINE
     Indication: PRODUCT USED FOR UNKNOWN INDICATION
     Route: 065
  94. CLOXAZOLAM [Interacting]
     Active Substance: CLOXAZOLAM
     Indication: PRODUCT USED FOR UNKNOWN INDICATION
     Route: 065
  95. FLUDIAZEPAM [Interacting]
     Active Substance: FLUDIAZEPAM
     Indication: PRODUCT USED FOR UNKNOWN INDICATION
     Route: 065
  96. PHENOBARBITAL. [Interacting]
     Active Substance: PHENOBARBITAL
     Indication: PRODUCT USED FOR UNKNOWN INDICATION
     Route: 065
  97. ETHOSUXIMIDE. [Interacting]
     Active Substance: ETHOSUXIMIDE
     Indication: PRODUCT USED FOR UNKNOWN INDICATION
     Route: 065
  98. ETHOTOIN [Interacting]
     Active Substance: ETHOTOIN
     Indication: PRODUCT USED FOR UNKNOWN INDICATION
     Route: 065
  99. BROMAZEPAM [Interacting]
     Active Substance: BROMAZEPAM
     Indication: PRODUCT USED FOR UNKNOWN INDICATION
     Route: 065
  100. LEVOMEPROMAZINE [Interacting]
     Active Substance: LEVOMEPROMAZINE
     Indication: PRODUCT USED FOR UNKNOWN INDICATION
     Route: 065
  101. MIANSERIN [Interacting]
     Active Substance: MIANSERIN
     Indication: PRODUCT USED FOR UNKNOWN INDICATION
     Route: 065
  102. OLANZAPINE. [Interacting]
     Active Substance: OLANZAPINE
     Indication: PRODUCT USED FOR UNKNOWN INDICATION
     Route: 065
  103. CARPIPRAMINE [Interacting]
     Active Substance: CARPIPRAMINE
     Indication: PRODUCT USED FOR UNKNOWN INDICATION
     Route: 065
  104. CLOCAPRAMINE [Interacting]
     Active Substance: CLOCAPRAMINE
     Indication: PRODUCT USED FOR UNKNOWN INDICATION
     Route: 065
  105. AMOBARBITAL [Interacting]
     Active Substance: AMOBARBITAL
     Indication: PRODUCT USED FOR UNKNOWN INDICATION
     Route: 065
  106. CALCIUM BROMIDE [Interacting]
     Active Substance: CALCIUM BROMIDE
     Indication: PRODUCT USED FOR UNKNOWN INDICATION
     Route: 065
  107. CLOTIAZEPAM [Interacting]
     Active Substance: CLOTIAZEPAM
     Indication: PRODUCT USED FOR UNKNOWN INDICATION
     Route: 065
  108. ZONISAMIDE. [Interacting]
     Active Substance: ZONISAMIDE
     Indication: PRODUCT USED FOR UNKNOWN INDICATION
     Route: 065

REACTIONS (4)
  - Drug interaction [Fatal]
  - Overdose [Fatal]
  - Completed suicide [Fatal]
  - Toxicity to various agents [Fatal]
